FAERS Safety Report 9379841 (Version 1)
Quarter: 2013Q2

REPORT INFORMATION
  Report Type: Spontaneous
  Country: CA (occurrence: None)
  Receive Date: 20130627
  Receipt Date: 20130627
  Transmission Date: 20140414
  Serious: Yes (Other)
  Sender: FDA-Public Use
  Company Number: SYM-2013-05092

PATIENT
  Age: 77 Year
  Sex: Male

DRUGS (11)
  1. DILTIAZEM [Suspect]
     Indication: PRODUCT USED FOR UNKNOWN INDICATION
     Dosage: 1 IN 1 D
  2. FUROSEMIDE (FUROSEMIDE) [Suspect]
     Indication: RIGHT VENTRICULAR FAILURE
     Route: 042
  3. SILDENAFIL (SILDENAFIL) [Suspect]
     Indication: PRODUCT USED FOR UNKNOWN INDICATION
     Route: 048
  4. ASPIRIN (ACETYLSALICYLIC ACID) (81 MILLIGRAM) (ACETYLSALICYLIC ACID) [Concomitant]
  5. CLOPIDOGREL (CLOPIDOGREL) (75 MILLIGRAM) (CLOPIDOGREL) [Concomitant]
  6. ATORVASTATIN (ATORVASTATIN) (40 MILLIGRAM) (ATORVASTATIN) [Concomitant]
  7. SALMETEROL (SERETIDE) (INHALATION) (FLUTICASONE PROPIONATE, SALMETEROL XINAFOATE) [Concomitant]
  8. TIOTROPIUM (TIOTROPIUM) (18 MICROGRAM, INHALATION) (TIOTROPIUM) [Concomitant]
  9. ACETYLCYSTEINE (ACETYLCYSTEINE) (1800 MILLIGRAM) (ACETYLCYSTEINE) [Concomitant]
  10. DOMPERIDONE (DOMPERIDONE) (20 MILLIGRAM) (DOMPERIDONE) [Concomitant]
  11. VITAMIN B-12 (CYANOCOBALAMIN) (CYANOCOBALAMIN) [Concomitant]

REACTIONS (7)
  - Ototoxicity [None]
  - Pulmonary hypertension [None]
  - Local swelling [None]
  - Sudden hearing loss [None]
  - Tinnitus [None]
  - Right ventricular failure [None]
  - Rales [None]
